FAERS Safety Report 11920016 (Version 1)
Quarter: 2016Q1

REPORT INFORMATION
  Report Type: Spontaneous
  Country: US (occurrence: US)
  Receive Date: 20160115
  Receipt Date: 20160115
  Transmission Date: 20160526
  Serious: Yes (Hospitalization, Other)
  Sender: FDA-Public Use
  Company Number: US-TEVA-625154USA

PATIENT
  Age: 24 Year
  Sex: Female

DRUGS (2)
  1. VALACICLOVIR [Suspect]
     Active Substance: VALACYCLOVIR HYDROCHLORIDE
     Indication: CHRONIC KIDNEY DISEASE
     Dosage: FOR 3 DAYS
     Route: 065
  2. PROPOFOL. [Concomitant]
     Active Substance: PROPOFOL
     Indication: SEDATION
     Route: 065

REACTIONS (4)
  - Overdose [Recovered/Resolved]
  - Hypertension [Recovering/Resolving]
  - Neurotoxicity [Recovered/Resolved]
  - Posterior reversible encephalopathy syndrome [Recovered/Resolved]
